FAERS Safety Report 9652838 (Version 1)
Quarter: 2013Q4

REPORT INFORMATION
  Report Type: Report from Study
  Country: US (occurrence: US)
  Receive Date: 20131029
  Receipt Date: 20131029
  Transmission Date: 20140711
  Serious: Yes (Other)
  Sender: FDA-Public Use
  Company Number: US-ALEXION-A201302787

PATIENT
  Sex: 0

DRUGS (2)
  1. SOLIRIS [Suspect]
     Indication: HAEMOLYTIC URAEMIC SYNDROME
     Dosage: UNK
     Route: 042
  2. BLOOD PRESSURE MEDICATION [Suspect]
     Indication: BLOOD PRESSURE
     Route: 065

REACTIONS (6)
  - Accident [Unknown]
  - Injury [Unknown]
  - Blood creatinine increased [Unknown]
  - Blood urea increased [Unknown]
  - Fatigue [Unknown]
  - Urticaria [Unknown]
